FAERS Safety Report 24369261 (Version 1)
Quarter: 2024Q3

REPORT INFORMATION
  Report Type: Spontaneous
  Country: CN (occurrence: CN)
  Receive Date: 20240927
  Receipt Date: 20240927
  Transmission Date: 20241016
  Serious: Yes (Other)
  Sender: SHENZHEN TECHDOW PHARMACEUTICAL
  Company Number: CN-91440300279544901A-J2024HPR000578

PATIENT
  Age: 79 Year
  Sex: Male

DRUGS (1)
  1. ENOXAPARIN SODIUM [Suspect]
     Active Substance: ENOXAPARIN SODIUM
     Indication: Anticoagulant therapy
     Dosage: 4000IU,QD
     Dates: start: 20240831, end: 20240901

REACTIONS (1)
  - Prothrombin time abnormal [Recovering/Resolving]

NARRATIVE: CASE EVENT DATE: 20240901
